FAERS Safety Report 4710184-3 (Version None)
Quarter: 2005Q3

REPORT INFORMATION
  Report Type: 
  Country: None (occurrence: None)
  Receive Date: 20050708
  Receipt Date: 20050708
  Transmission Date: 20060218
  Serious: Yes (Life-Threatening, Hospitalization, Disabling, Other)
  Sender: FDA-Public Use
  Company Number: None

PATIENT
  Age: 52 Year
  Sex: Male
  Weight: 72.5755 kg

DRUGS (4)
  1. NEURONTIN [Suspect]
     Dosage: 600 MG
     Dates: start: 20040501
  2. BEXTRA [Suspect]
     Dosage: 300 MG
     Dates: start: 20050701
  3. VIOXX [Suspect]
  4. THERAPHYIN [Concomitant]

REACTIONS (5)
  - BACK INJURY [None]
  - CONVULSION [None]
  - JOINT INJURY [None]
  - LIMB INJURY [None]
  - ROAD TRAFFIC ACCIDENT [None]
